FAERS Safety Report 5072964-7 (Version None)
Quarter: 2006Q3

REPORT INFORMATION
  Report Type: 
  Country: None (occurrence: None)
  Receive Date: 20060802
  Receipt Date: 20060718
  Transmission Date: 20061208
  Serious: Yes (Death, Hospitalization, Other)
  Sender: FDA-Public Use
  Company Number: SPV1-2006-00184

PATIENT
  Age: 81 Year
  Sex: Female

DRUGS (5)
  1. PENTASA [Suspect]
     Indication: CROHN'S DISEASE
     Dosage: 500 MG, 2X/DAY:BID, ORAL
     Route: 048
     Dates: start: 20060510, end: 20060612
  2. OMEPRAZOLE [Concomitant]
  3. PREDNISOLONE [Concomitant]
  4. SODIUM ALGINATE (SODIUM ALGINATE) [Concomitant]
  5. AMLODIPINE BESYLATE [Concomitant]

REACTIONS (10)
  - DISSEMINATED INTRAVASCULAR COAGULATION [None]
  - GASTROINTESTINAL INFECTION [None]
  - HAEMODIALYSIS [None]
  - INFECTION IN AN IMMUNOCOMPROMISED HOST [None]
  - INFLAMMATION [None]
  - OEDEMA PERIPHERAL [None]
  - PSEUDOMONAL SEPSIS [None]
  - RESPIRATORY DISTRESS [None]
  - STOMATITIS [None]
  - THROMBOCYTOPENIA [None]
